FAERS Safety Report 12159535 (Version 1)
Quarter: 2016Q1

REPORT INFORMATION
  Report Type: Spontaneous
  Country: FR (occurrence: FR)
  Receive Date: 20160308
  Receipt Date: 20160308
  Transmission Date: 20160526
  Serious: Yes (Hospitalization, Other)
  Sender: FDA-Public Use
  Company Number: FR-PFIZER INC-2016144487

PATIENT
  Age: 85 Year
  Sex: Male

DRUGS (5)
  1. CORDARONE [Suspect]
     Active Substance: AMIODARONE HYDROCHLORIDE
     Dosage: 200 MG, DAILY
     Route: 048
  2. LASILIX [Concomitant]
     Active Substance: FUROSEMIDE
     Dosage: UNK
  3. HYPERIUM [Concomitant]
     Active Substance: RILMENIDINE PHOSPHATE
     Dosage: UNK
  4. PARIET [Concomitant]
     Active Substance: RABEPRAZOLE SODIUM
     Dosage: UNK
  5. PREVISCAN [Interacting]
     Active Substance: FLUINDIONE
     Dosage: 10 MG, DAILY
     Route: 048
     Dates: end: 20160119

REACTIONS (6)
  - Muscle haemorrhage [Recovering/Resolving]
  - Hypotension [Unknown]
  - Acute kidney injury [Unknown]
  - Potentiating drug interaction [Recovering/Resolving]
  - Hypovolaemia [Unknown]
  - Microcytic anaemia [Unknown]

NARRATIVE: CASE EVENT DATE: 20160119
